FAERS Safety Report 7640607-1 (Version None)
Quarter: 2011Q3

REPORT INFORMATION
  Report Type: 
  Country: None (occurrence: None)
  Receive Date: 20110728
  Receipt Date: 20110720
  Transmission Date: 20111222
  Serious: No
  Sender: FDA-Public Use
  Company Number: US-BIOGENIDEC-2011BI027503

PATIENT
  Sex: Male

DRUGS (1)
  1. AVONEX [Suspect]
     Indication: MULTIPLE SCLEROSIS
     Route: 030
     Dates: start: 19980315

REACTIONS (5)
  - PAIN IN EXTREMITY [None]
  - MULTIPLE ALLERGIES [None]
  - DEMENTIA [None]
  - OPTIC NEURITIS [None]
  - ADJUSTMENT DISORDER [None]
